FAERS Safety Report 7059791-6 (Version None)
Quarter: 2010Q4

REPORT INFORMATION
  Report Type: 
  Country: None (occurrence: None)
  Receive Date: 20101025
  Receipt Date: 20101013
  Transmission Date: 20110411
  Serious: Yes (Hospitalization)
  Sender: FDA-Public Use
  Company Number: CA-PFIZER INC-2007062857

PATIENT
  Age: 68 Year
  Sex: Female
  Weight: 65 kg

DRUGS (8)
  1. SUNITINIB MALATE [Suspect]
     Indication: METASTATIC RENAL CELL CARCINOMA
     Dosage: 50 MG, 1X/DAY
     Route: 048
     Dates: start: 20060719
  2. CALCIUM WITH VITAMIN D [Concomitant]
     Route: 048
     Dates: start: 20030101
  3. ACETYLSALICYLIC ACID/PARACETAMOL [Concomitant]
     Route: 048
     Dates: start: 20060712
  4. PANTOPRAZOLE SODIUM [Concomitant]
     Route: 048
     Dates: start: 20060920
  5. COLACE [Concomitant]
     Route: 048
     Dates: start: 20060928
  6. SYNTHROID [Concomitant]
     Route: 048
     Dates: start: 20070330
  7. LOPERAMIDE [Concomitant]
     Route: 048
  8. GRAVOL TAB [Concomitant]
     Route: 048
     Dates: start: 20070424

REACTIONS (1)
  - APPENDICITIS [None]
